FAERS Safety Report 18561175 (Version 5)
Quarter: 2021Q4

REPORT INFORMATION
  Report Type: Report from Study
  Country: BR (occurrence: BR)
  Receive Date: 20201130
  Receipt Date: 20211006
  Transmission Date: 20220303
  Serious: Yes (Other)
  Sender: FDA-Public Use
  Company Number: BR-TAKEDA-BR201901703

PATIENT
  Age: 23 Year
  Sex: Female
  Weight: 48 kg

DRUGS (12)
  1. IDURSULFASE [Suspect]
     Active Substance: IDURSULFASE
     Indication: Mucopolysaccharidosis II
     Dosage: 5 DOSAGE FORM
     Route: 042
     Dates: start: 20080723
  2. IDURSULFASE [Suspect]
     Active Substance: IDURSULFASE
     Dosage: UNK
     Route: 042
     Dates: start: 20201001
  3. IDURSULFASE [Suspect]
     Active Substance: IDURSULFASE
     Dosage: UNK
     Route: 042
     Dates: start: 20120104
  4. HUNTERASE [Concomitant]
     Indication: Product used for unknown indication
     Dosage: UNK
     Route: 065
  5. NEOZINE [CETIRIZINE HYDROCHLORIDE] [Concomitant]
     Indication: Insomnia
     Dosage: UNK
     Route: 065
  6. BROMOPRIDE [Concomitant]
     Active Substance: BROMOPRIDE
     Indication: Gastritis
     Dosage: 200 MILLIGRAM, Q12H
     Route: 065
  7. CARBAMAZEPINE [Concomitant]
     Active Substance: CARBAMAZEPINE
     Indication: Seizure
     Dosage: 200 MILLIGRAM
     Route: 065
  8. BUTYLSCOPOLAMINE BROMIDE [Concomitant]
     Active Substance: BUTYLSCOPOLAMINE BROMIDE
     Indication: Pain
     Dosage: UNK
     Route: 065
  9. GUTTALAX [Concomitant]
     Indication: Bowel movement irregularity
     Dosage: UNK UNK, QD
     Route: 065
  10. SIMETHICONE (DIMETHICONE) [Concomitant]
     Active Substance: DIMETHICONE
     Indication: Bowel movement irregularity
     Dosage: UNK UNK, QD
     Route: 065
  11. GAVILAX [Concomitant]
     Active Substance: POLYETHYLENE GLYCOL 3350
     Indication: Bowel movement irregularity
     Dosage: UNK
     Route: 065
  12. OMEPRAZOLE [Concomitant]
     Active Substance: OMEPRAZOLE
     Dosage: 200 MILLIGRAM, Q12H
     Route: 065

REACTIONS (11)
  - Pneumonia [Unknown]
  - Allergic respiratory symptom [Unknown]
  - Lung disorder [Unknown]
  - Bedridden [Unknown]
  - Bronchitis [Unknown]
  - Sinusitis [Unknown]
  - Mental disorder [Unknown]
  - Bronchospasm [Unknown]
  - Movement disorder [Unknown]
  - Therapy interrupted [Unknown]
  - Product use issue [Unknown]

NARRATIVE: CASE EVENT DATE: 20201001
